FAERS Safety Report 21934761 (Version 2)
Quarter: 2024Q1

REPORT INFORMATION
  Report Type: Report from Study
  Country: US (occurrence: US)
  Receive Date: 20230201
  Receipt Date: 20240208
  Transmission Date: 20240410
  Serious: Yes (Hospitalization)
  Sender: FDA-Public Use
  Company Number: US-ALNYLAM PHARMACEUTICALS, INC.-ALN-2023-000365

PATIENT

DRUGS (1)
  1. ONPATTRO [Suspect]
     Active Substance: PATISIRAN SODIUM
     Indication: Hereditary neuropathic amyloidosis
     Dosage: UNK
     Route: 065
     Dates: start: 20200603

REACTIONS (4)
  - Cardiac pacemaker insertion [Unknown]
  - Heart rate decreased [Unknown]
  - Sluggishness [Unknown]
  - Dizziness [Unknown]

NARRATIVE: CASE EVENT DATE: 20221228
